FAERS Safety Report 8614233-1 (Version None)
Quarter: 2012Q3

REPORT INFORMATION
  Report Type: 
  Country: None (occurrence: None)
  Receive Date: 20120813
  Receipt Date: 20120813
  Transmission Date: 20120928
  Serious: Yes (Hospitalization)
  Sender: FDA-Public Use
  Company Number: None

PATIENT
  Sex: Female
  Weight: 71.4 kg

DRUGS (2)
  1. AFINITOR [Suspect]
     Dosage: 230 MG
  2. OCTREOTIDE ACETATE [Suspect]
     Dosage: 20 MG

REACTIONS (2)
  - DYSPNOEA [None]
  - CHEST PAIN [None]
